FAERS Safety Report 5867232-7 (Version None)
Quarter: 2008Q3

REPORT INFORMATION
  Report Type: 
  Country: None (occurrence: None)
  Receive Date: 20080902
  Receipt Date: 20080827
  Transmission Date: 20090109
  Serious: Yes (Hospitalization)
  Sender: FDA-Public Use
  Company Number: US-MERCK-0807USA00304

PATIENT
  Age: 72 Year
  Sex: Female

DRUGS (4)
  1. ARIMIDEX [Concomitant]
     Route: 065
     Dates: start: 20050101, end: 20070101
  2. [THERAPY UNSPECIFIED] [Concomitant]
     Route: 065
  3. FOSAMAX [Suspect]
     Indication: OSTEOPOROSIS
     Route: 048
     Dates: start: 20040101, end: 20070101
  4. FOSAMAX [Suspect]
     Route: 048
     Dates: start: 20080201

REACTIONS (1)
  - SPINAL FRACTURE [None]
